FAERS Safety Report 4404425-X (Version None)
Quarter: 2004Q3

REPORT INFORMATION
  Report Type: 
  Country: None (occurrence: None)
  Receive Date: 20040719
  Receipt Date: 20040707
  Transmission Date: 20050211
  Serious: Yes (Death, Hospitalization, Other)
  Sender: FDA-Public Use
  Company Number: 2004046486

PATIENT
  Age: 7 Year
  Sex: Female

DRUGS (4)
  1. FLUCONAZOLE [Suspect]
     Indication: SYSTEMIC CANDIDA
     Dosage: INTRAVENOUS
     Route: 042
  2. BUSULFAN (BUSULFAN) [Suspect]
     Indication: MEDULLOBLASTOMA
  3. ALL OTHER THERAPEUTIC PRODUCTS (ALL OTHER THERAPEUTIC PRODUCTS) [Suspect]
     Indication: MEDULLOBLASTOMA
  4. ALL OTHER THERAPEUTIC PRODUCTS (ALL OTHER THERAPEUTIC PRODUCTS) [Suspect]
     Indication: MEDULLOBLASTOMA

REACTIONS (8)
  - COMA [None]
  - INFECTION [None]
  - MYOCLONUS [None]
  - NERVOUS SYSTEM DISORDER [None]
  - OESOPHAGEAL CANDIDIASIS [None]
  - ORAL CANDIDIASIS [None]
  - SOMNOLENCE [None]
  - SYSTEMIC CANDIDA [None]
